FAERS Safety Report 9282261 (Version 1)
Quarter: 2013Q2

REPORT INFORMATION
  Report Type: Spontaneous
  Country: US (occurrence: None)
  Receive Date: 20130509
  Receipt Date: 20130509
  Transmission Date: 20140414
  Serious: Yes (Death)
  Sender: FDA-Public Use
  Company Number: None

PATIENT
  Sex: Male
  Weight: 97.52 kg

DRUGS (11)
  1. AZITHROMYCIN [Suspect]
     Indication: PNEUMONIA
     Dosage: 500MG X1, THEN 250MG DAILY ORAL
     Dates: start: 20130418
  2. ALBUTEROL [Concomitant]
  3. ATENOLOL [Concomitant]
  4. FEXOFENADINE [Concomitant]
  5. FLUTICASONE [Concomitant]
  6. ADVAIR [Concomitant]
  7. OMEPRAZOLE [Concomitant]
  8. OXYCODONE/APAP [Concomitant]
  9. PRAMIPEXOLE [Concomitant]
  10. ROSUVASTATIN [Concomitant]
  11. TAMSULOSIN [Concomitant]

REACTIONS (4)
  - Ventricular fibrillation [None]
  - Pulse absent [None]
  - Cardio-respiratory arrest [None]
  - Fall [None]
